FAERS Safety Report 21436608 (Version 24)
Quarter: 2025Q3

REPORT INFORMATION
  Report Type: Spontaneous
  Country: CA (occurrence: CA)
  Receive Date: 20221010
  Receipt Date: 20250905
  Transmission Date: 20251021
  Serious: Yes (Other)
  Sender: PFIZER
  Company Number: CA-PFIZER INC-202200625639

PATIENT
  Age: 55 Year
  Sex: Female
  Weight: 68 kg

DRUGS (11)
  1. RUXIENCE [Suspect]
     Active Substance: RITUXIMAB-PVVR
     Indication: Rheumatoid arthritis
     Route: 042
     Dates: start: 20220412, end: 20220412
  2. RUXIENCE [Suspect]
     Active Substance: RITUXIMAB-PVVR
     Route: 042
     Dates: start: 20220509, end: 20220509
  3. RUXIENCE [Suspect]
     Active Substance: RITUXIMAB-PVVR
     Route: 042
     Dates: start: 20221107, end: 20221107
  4. RUXIENCE [Suspect]
     Active Substance: RITUXIMAB-PVVR
     Route: 042
     Dates: start: 20221122, end: 20221122
  5. RUXIENCE [Suspect]
     Active Substance: RITUXIMAB-PVVR
     Route: 042
     Dates: start: 20230504, end: 20230504
  6. RUXIENCE [Suspect]
     Active Substance: RITUXIMAB-PVVR
     Route: 042
     Dates: start: 20240910
  7. RUXIENCE [Suspect]
     Active Substance: RITUXIMAB-PVVR
     Route: 042
     Dates: start: 20240924, end: 20240924
  8. RUXIENCE [Suspect]
     Active Substance: RITUXIMAB-PVVR
     Route: 042
     Dates: start: 20250613
  9. RUXIENCE [Suspect]
     Active Substance: RITUXIMAB-PVVR
     Route: 042
     Dates: start: 20250806
  10. BENADRYL [Concomitant]
     Active Substance: DIPHENHYDRAMINE HYDROCHLORIDE
     Dates: start: 20240910, end: 20240910
  11. METHOTREXATE [Concomitant]
     Active Substance: METHOTREXATE

REACTIONS (39)
  - Fall [Unknown]
  - Wrist fracture [Recovering/Resolving]
  - Pneumonia [Unknown]
  - Spinal fracture [Unknown]
  - Stress fracture [Unknown]
  - Condition aggravated [Not Recovered/Not Resolved]
  - Drug ineffective [Unknown]
  - Tooth infection [Not Recovered/Not Resolved]
  - Malaise [Not Recovered/Not Resolved]
  - Impaired driving ability [Unknown]
  - Loss of personal independence in daily activities [Unknown]
  - Neuralgia [Not Recovered/Not Resolved]
  - Dysphagia [Not Recovered/Not Resolved]
  - Sinus congestion [Unknown]
  - Diarrhoea [Not Recovered/Not Resolved]
  - Asthenia [Unknown]
  - COVID-19 [Recovered/Resolved]
  - Pain [Unknown]
  - Somnolence [Unknown]
  - Dizziness [Unknown]
  - Abdominal pain upper [Unknown]
  - Diarrhoea [Unknown]
  - Urinary incontinence [Unknown]
  - Cough [Unknown]
  - Nasal congestion [Unknown]
  - Ear infection [Unknown]
  - Anal incontinence [Unknown]
  - Epistaxis [Unknown]
  - Illness [Unknown]
  - Ligament sprain [Unknown]
  - Oral mucosal discolouration [Unknown]
  - Pain in extremity [Not Recovered/Not Resolved]
  - Osteitis [Not Recovered/Not Resolved]
  - Gingival erythema [Not Recovered/Not Resolved]
  - Inappropriate schedule of product administration [Unknown]
  - Off label use [Unknown]
  - Intentional product use issue [Unknown]
  - Oral infection [Unknown]
  - Immune system disorder [Unknown]

NARRATIVE: CASE EVENT DATE: 20220101
